FAERS Safety Report 8276444-7 (Version None)
Quarter: 2012Q2

REPORT INFORMATION
  Report Type: 
  Country: None (occurrence: None)
  Receive Date: 20120412
  Receipt Date: 20120410
  Transmission Date: 20120825
  Serious: No
  Sender: FDA-Public Use
  Company Number: US-PFIZER INC-2012079130

PATIENT

DRUGS (5)
  1. CLONAZEPAM [Concomitant]
     Indication: ANXIETY
     Dosage: 1 MG, 2X/DAY (AS NEEDED)
  2. LISINOPRIL [Concomitant]
     Indication: HYPERTENSION
     Dosage: 20 MG, 1X/DAY (ONCE IN THE MORNING)
  3. ZOLPIDEM [Concomitant]
     Indication: INSOMNIA
     Dosage: 10 MG, AT BED TIME
  4. PRISTIQ [Suspect]
     Dosage: 100 MG, 1X/DAY (EVERY AM)
     Route: 048
  5. SERTRALINE [Concomitant]
     Dosage: UNK

REACTIONS (1)
  - THINKING ABNORMAL [None]
